FAERS Safety Report 8027428-5 (Version None)
Quarter: 2011Q4

REPORT INFORMATION
  Report Type: 
  Country: None (occurrence: None)
  Receive Date: 20111130
  Receipt Date: 20111114
  Transmission Date: 20120403
  Serious: Yes (Hospitalization, Other)
  Sender: FDA-Public Use
  Company Number: US201108001110

PATIENT
  Age: 52 Year
  Sex: Female
  Weight: 81.6 kg

DRUGS (12)
  1. METFORMIN HCL [Concomitant]
  2. DIFLUNISAL [Concomitant]
  3. PEPCID [Concomitant]
  4. ALBUTEROL [Concomitant]
  5. CEFROXADINE (CEFROXADINE ) [Concomitant]
  6. TYLENOL /SCH/ (PARACETAMOL [Concomitant]
  7. GLYBURIDE [Concomitant]
  8. FEXOFENADINE HCL [Concomitant]
  9. BYETTA [Suspect]
     Indication: PRODUCT USED FOR UNKNOWN INDICATION
     Dosage: Q0 UG, BID
     Dates: start: 20090201
  10. ESTROPIPATE [Concomitant]
  11. SKELAXIN [Concomitant]
  12. CYMBALTA [Concomitant]

REACTIONS (3)
  - BLOOD GLUCOSE INCREASED [None]
  - PANCREATITIS [None]
  - RENAL FAILURE [None]
